FAERS Safety Report 13138295 (Version 1)
Quarter: 2017Q1

REPORT INFORMATION
  Report Type: Spontaneous
  Country: US (occurrence: US)
  Receive Date: 20170123
  Receipt Date: 20170123
  Transmission Date: 20170428
  Serious: Yes (Hospitalization)
  Sender: FDA-Public Use
  Company Number: None

PATIENT
  Age: 17 Year
  Sex: Male

DRUGS (17)
  1. TASIGNA [Suspect]
     Active Substance: NILOTINIB
     Indication: ACUTE LYMPHOCYTIC LEUKAEMIA
     Dosage: TWO 150MG CAPSULES DAILY ORALLY
     Route: 048
     Dates: start: 20161228
  2. DIFLUCAN [Concomitant]
     Active Substance: FLUCONAZOLE
  3. NEUPOGEN [Concomitant]
     Active Substance: FILGRASTIM
  4. BACTRIM [Concomitant]
     Active Substance: SULFAMETHOXAZOLE\TRIMETHOPRIM
  5. IMITREX [Concomitant]
     Active Substance: SUMATRIPTAN SUCCINATE
  6. TUMS [Concomitant]
     Active Substance: CALCIUM CARBONATE
  7. TYLENOL [Concomitant]
     Active Substance: ACETAMINOPHEN
  8. DOCUSATE [Concomitant]
     Active Substance: DOCUSATE
  9. LORAZEPAM. [Concomitant]
     Active Substance: LORAZEPAM
  10. SENNA LAXATIVE [Concomitant]
     Active Substance: SENNOSIDES
  11. ZOFRAN [Concomitant]
     Active Substance: ONDANSETRON HYDROCHLORIDE
  12. ACYCLOVIR. [Concomitant]
     Active Substance: ACYCLOVIR
  13. OXYCODONE [Concomitant]
     Active Substance: OXYCODONE
  14. DIPHENHYDRAMINE. [Concomitant]
     Active Substance: DIPHENHYDRAMINE
  15. OMEPRAZOLE. [Concomitant]
     Active Substance: OMEPRAZOLE
  16. LIDOCAINE. [Concomitant]
     Active Substance: LIDOCAINE
  17. DULOXETINE. [Concomitant]
     Active Substance: DULOXETINE

REACTIONS (1)
  - Bacterial infection [None]
